FAERS Safety Report 18609543 (Version 7)
Quarter: 2021Q2

REPORT INFORMATION
  Report Type: Spontaneous
  Country: US (occurrence: US)
  Receive Date: 20201214
  Receipt Date: 20210622
  Transmission Date: 20210717
  Serious: Yes (Other)
  Sender: FDA-Public Use
  Company Number: US-ROCHE-2729469

PATIENT
  Sex: Female

DRUGS (2)
  1. OCREVUS [Suspect]
     Active Substance: OCRELIZUMAB
     Indication: RELAPSING-REMITTING MULTIPLE SCLEROSIS
     Route: 042
     Dates: start: 201604
  2. COVID?19 VACCINE [Concomitant]
     Indication: COVID-19 PROPHYLAXIS
     Dates: start: 20210322

REACTIONS (4)
  - General physical health deterioration [Unknown]
  - Visual impairment [Not Recovered/Not Resolved]
  - Vision blurred [Unknown]
  - COVID-19 pneumonia [Recovering/Resolving]

NARRATIVE: CASE EVENT DATE: 2020
